FAERS Safety Report 7579399-3 (Version None)
Quarter: 2011Q2

REPORT INFORMATION
  Report Type: 
  Country: None (occurrence: None)
  Receive Date: 20110629
  Receipt Date: 20110620
  Transmission Date: 20111010
  Serious: Yes (Hospitalization)
  Sender: FDA-Public Use
  Company Number: US-BIOGENIDEC-2011BI022980

PATIENT
  Age: 57 Year
  Sex: Female

DRUGS (2)
  1. TYSABRI [Suspect]
     Route: 042
     Dates: start: 20071214, end: 20080410
  2. TYSABRI [Suspect]
     Indication: MULTIPLE SCLEROSIS
     Route: 042
     Dates: start: 20080609

REACTIONS (13)
  - EMOTIONAL DISTRESS [None]
  - MALAISE [None]
  - CELLULITIS STAPHYLOCOCCAL [None]
  - BACK DISORDER [None]
  - ABASIA [None]
  - GAIT DISTURBANCE [None]
  - COGNITIVE DISORDER [None]
  - FALL [None]
  - ANXIETY [None]
  - OEDEMA PERIPHERAL [None]
  - DIABETES MELLITUS [None]
  - STRESS [None]
  - FATIGUE [None]
